FAERS Safety Report 5789119-0 (Version None)
Quarter: 2008Q2

REPORT INFORMATION
  Report Type: 
  Country: None (occurrence: None)
  Receive Date: 20080626
  Receipt Date: 20080617
  Transmission Date: 20081010
  Serious: Yes (Hospitalization)
  Sender: FDA-Public Use
  Company Number: JP-JNJFOC-20080503460

PATIENT
  Sex: Male

DRUGS (5)
  1. LEVOFLOXACIN [Suspect]
     Indication: PHARYNGITIS
     Route: 048
  2. SAWACILLIN [Suspect]
     Indication: PHARYNGITIS
     Route: 048
  3. DASEN [Concomitant]
     Indication: PHARYNGITIS
     Route: 048
  4. MAOUBUSHISAISHINTOU [Concomitant]
     Indication: PHARYNGITIS
     Route: 048
  5. BIOFERMIN [Concomitant]
     Indication: PHARYNGITIS
     Route: 048

REACTIONS (1)
  - ENTEROCOLITIS HAEMORRHAGIC [None]
